FAERS Safety Report 12777446 (Version 1)
Quarter: 2016Q3

REPORT INFORMATION
  Report Type: Spontaneous
  Country: US (occurrence: US)
  Receive Date: 20160924
  Receipt Date: 20160924
  Transmission Date: 20161109
  Serious: No
  Sender: FDA-Public Use
  Company Number: US-TEVA-617552USA

PATIENT
  Sex: Female

DRUGS (1)
  1. EPITOL [Suspect]
     Active Substance: CARBAMAZEPINE
     Route: 065

REACTIONS (2)
  - Nerve injury [Unknown]
  - Paraesthesia [Unknown]
